FAERS Safety Report 16869358 (Version 1)
Quarter: 2019Q3

REPORT INFORMATION
  Report Type: Spontaneous
  Country: CZ (occurrence: CZ)
  Receive Date: 20190930
  Receipt Date: 20190930
  Transmission Date: 20191005
  Serious: Yes (Other)
  Sender: FDA-Public Use
  Company Number: CZ-MYLANLABS-2019M1090006

PATIENT
  Sex: Female

DRUGS (1)
  1. CAPECITABINE. [Suspect]
     Active Substance: CAPECITABINE
     Indication: APPENDIX CANCER
     Dosage: UNK
     Route: 048

REACTIONS (4)
  - Metastases to peritoneum [Unknown]
  - Oncologic complication [Unknown]
  - Ascites [Unknown]
  - Haematotoxicity [Unknown]
